FAERS Safety Report 6257328-2 (Version None)
Quarter: 2009Q3

REPORT INFORMATION
  Report Type: 
  Country: None (occurrence: None)
  Receive Date: 20090706
  Receipt Date: 20081125
  Transmission Date: 20100115
  Serious: Yes (Death)
  Sender: FDA-Public Use
  Company Number: PHHY2008CA26514

PATIENT
  Sex: Female
  Weight: 108.9 kg

DRUGS (8)
  1. EXJADE [Suspect]
     Indication: MYELODYSPLASTIC SYNDROME
     Dosage: 1500 MG, UNK
     Route: 048
     Dates: start: 20071201, end: 20081001
  2. GABAPENTIN [Concomitant]
     Dosage: 300 MG, BID
     Route: 048
  3. OXYBUTYNIN CHLORIDE [Concomitant]
     Dosage: 5 MG, QID
  4. LEVOTHYROXINE SODIUM [Concomitant]
     Dosage: 2.5 MG, QD
     Route: 048
  5. TRAZODONE HCL [Concomitant]
     Dosage: 50 MG, QD
     Route: 048
  6. MAXERAN [Concomitant]
     Dosage: 10 MG, BID
  7. GASTER [Concomitant]
     Dosage: 10 MG, BID
  8. LOZIDE [Concomitant]
     Dosage: 2.5 MG, QD
     Route: 048

REACTIONS (1)
  - SEPSIS [None]
